FAERS Safety Report 22700329 (Version 2)
Quarter: 2025Q4

REPORT INFORMATION
  Report Type: Spontaneous
  Country: US (occurrence: US)
  Receive Date: 20230713
  Receipt Date: 20251015
  Transmission Date: 20260117
  Serious: No
  Sender: BAYER HEALTHCARE PHARMACEUTICALS INC.
  Company Number: US-BAYER-2023A090632

PATIENT
  Age: 44 Year
  Sex: Female

DRUGS (4)
  1. MIRENA [Suspect]
     Active Substance: LEVONORGESTREL
     Indication: Product used for unknown indication
     Dosage: 20?G/DAY
     Route: 015
     Dates: start: 202303
  2. XOLAIR [Concomitant]
     Active Substance: OMALIZUMAB
  3. LUMRYZ [Concomitant]
     Active Substance: SODIUM OXYBATE
  4. WAKIX [Concomitant]
     Active Substance: PITOLISANT HYDROCHLORIDE

REACTIONS (3)
  - Urticaria [None]
  - Rash [None]
  - Erythema [None]

NARRATIVE: CASE EVENT DATE: 20250901
